FAERS Safety Report 5707053-9 (Version None)
Quarter: 2008Q2

REPORT INFORMATION
  Report Type: 
  Country: None (occurrence: None)
  Receive Date: 20080416
  Receipt Date: 20080402
  Transmission Date: 20081010
  Serious: Yes (Hospitalization)
  Sender: FDA-Public Use
  Company Number: B0515307A

PATIENT
  Age: 82 Year
  Sex: Female

DRUGS (10)
  1. AUGMENTIN '125' [Suspect]
     Indication: BRONCHITIS
     Route: 048
     Dates: start: 20080206, end: 20080218
  2. PREVISCAN [Suspect]
     Indication: DRUG USE FOR UNKNOWN INDICATION
     Dosage: .75TAB PER DAY
     Route: 048
     Dates: end: 20080218
  3. BRICANYL [Concomitant]
     Indication: DRUG USE FOR UNKNOWN INDICATION
     Route: 055
     Dates: start: 20080206, end: 20080218
  4. BISOLVON [Concomitant]
     Indication: DRUG USE FOR UNKNOWN INDICATION
     Route: 065
     Dates: start: 20080206, end: 20080218
  5. PREDNISONE [Concomitant]
     Indication: DRUG USE FOR UNKNOWN INDICATION
     Route: 065
     Dates: start: 20080206, end: 20080218
  6. RESPILENE [Concomitant]
     Indication: DRUG USE FOR UNKNOWN INDICATION
     Route: 065
     Dates: start: 20080206, end: 20080218
  7. SIMVASTATIN [Concomitant]
     Indication: DRUG USE FOR UNKNOWN INDICATION
     Route: 065
  8. FUROSEMIDE [Concomitant]
     Indication: DRUG USE FOR UNKNOWN INDICATION
     Route: 065
     Dates: end: 20080218
  9. CORDARONE [Concomitant]
     Indication: DRUG USE FOR UNKNOWN INDICATION
     Route: 065
  10. ELISOR [Concomitant]
     Indication: DRUG USE FOR UNKNOWN INDICATION
     Route: 065

REACTIONS (4)
  - ABDOMINAL PAIN [None]
  - MUSCLE HAEMORRHAGE [None]
  - OVERDOSE [None]
  - SWELLING [None]
